FAERS Safety Report 10870337 (Version 1)
Quarter: 2015Q1

REPORT INFORMATION
  Report Type: Spontaneous
  Country: US (occurrence: US)
  Receive Date: 20150226
  Receipt Date: 20150226
  Transmission Date: 20150721
  Serious: Yes (Disabling, Other)
  Sender: FDA-Public Use
  Company Number: US-SA-2015SA022704

PATIENT
  Age: 70 Year
  Sex: Female

DRUGS (2)
  1. ALLEGRA [Suspect]
     Active Substance: FEXOFENADINE HYDROCHLORIDE
     Indication: VIRAL INFECTION
     Route: 048
  2. AZITHROMYCIN [Concomitant]
     Active Substance: AZITHROMYCIN ANHYDROUS

REACTIONS (6)
  - Lung neoplasm malignant [Recovering/Resolving]
  - Product use issue [Unknown]
  - Diabetes mellitus [Unknown]
  - Cancer in remission [Recovering/Resolving]
  - Extra dose administered [Unknown]
  - Unevaluable event [Unknown]
